FAERS Safety Report 7230213-5 (Version None)
Quarter: 2011Q1

REPORT INFORMATION
  Report Type: 
  Country: None (occurrence: None)
  Receive Date: 20110118
  Receipt Date: 20110107
  Transmission Date: 20110831
  Serious: Yes (Hospitalization, Other)
  Sender: FDA-Public Use
  Company Number: CA-US-EMD SERONO, INC.-230063K09CAN

PATIENT
  Sex: Female

DRUGS (2)
  1. REBIF [Suspect]
     Indication: RELAPSING-REMITTING MULTIPLE SCLEROSIS
     Dates: start: 20090131
  2. REBIF [Suspect]
     Dates: start: 20071005, end: 20090128

REACTIONS (5)
  - HEADACHE [None]
  - KIDNEY INFECTION [None]
  - GAIT DISTURBANCE [None]
  - NAUSEA [None]
  - SEPSIS [None]
